FAERS Safety Report 23578072 (Version 1)
Quarter: 2024Q1

REPORT INFORMATION
  Report Type: Spontaneous
  Country: US (occurrence: US)
  Receive Date: 20240229
  Receipt Date: 20240229
  Transmission Date: 20240410
  Serious: Yes (Other)
  Sender: FDA-Public Use
  Company Number: US-MLMSERVICE-20240212-4827900-1

PATIENT
  Age: 55 Year
  Sex: Female

DRUGS (6)
  1. QUETIAPINE [Interacting]
     Active Substance: QUETIAPINE
     Indication: Product used for unknown indication
     Dosage: 600 MILLIGRAM
     Route: 065
  2. RITONAVIR [Interacting]
     Active Substance: RITONAVIR
     Indication: COVID-19
     Dosage: UNK
     Route: 065
  3. HERBALS\MITRAGYNINE [Interacting]
     Active Substance: HERBALS\MITRAGYNINE
     Indication: Phytotherapy
     Dosage: UNK
     Route: 065
  4. HERBALS\MITRAGYNINE [Interacting]
     Active Substance: HERBALS\MITRAGYNINE
     Indication: Menopausal symptoms
  5. NIRMATRELVIR [Interacting]
     Active Substance: NIRMATRELVIR
     Indication: COVID-19
     Dosage: UNK
     Route: 065
  6. METOPROLOL [Concomitant]
     Active Substance: METOPROLOL
     Indication: Product used for unknown indication
     Dosage: 50 MILLIGRAM
     Route: 065

REACTIONS (3)
  - Serotonin syndrome [Recovered/Resolved]
  - Drug interaction [Recovered/Resolved]
  - Herbal interaction [Recovered/Resolved]
